FAERS Safety Report 17289584 (Version 1)
Quarter: 2020Q1

REPORT INFORMATION
  Report Type: Spontaneous
  Country: HK (occurrence: HK)
  Receive Date: 20200120
  Receipt Date: 20200120
  Transmission Date: 20200409
  Serious: Yes (Hospitalization)
  Sender: FDA-Public Use
  Company Number: HK-EPIC PHARMA LLC-2020EPC00010

PATIENT
  Age: 81 Year
  Sex: Female

DRUGS (1)
  1. PHENYTOIN. [Suspect]
     Active Substance: PHENYTOIN
     Indication: PETIT MAL EPILEPSY
     Dosage: 100 MG, 3X/DAY
     Route: 042

REACTIONS (5)
  - Purple glove syndrome [Recovered/Resolved]
  - Amputation [Recovered/Resolved]
  - Necrosis [Recovered/Resolved]
  - Venous thrombosis [Recovered/Resolved]
  - Gangrene [Recovered/Resolved]
